FAERS Safety Report 8210712-X (Version None)
Quarter: 2012Q1

REPORT INFORMATION
  Report Type: 
  Country: None (occurrence: None)
  Receive Date: 20120315
  Receipt Date: 20120305
  Transmission Date: 20120608
  Serious: Yes (Hospitalization)
  Sender: FDA-Public Use
  Company Number: US-BIOGENIDEC-2011BI025904

PATIENT
  Age: 54 Year
  Sex: Male

DRUGS (4)
  1. OXCARBAZEPINE [Concomitant]
     Indication: MUSCLE SPASMS
     Route: 048
     Dates: start: 20010101
  2. BACLOFEN [Concomitant]
     Indication: MUSCLE SPASMS
     Route: 048
     Dates: start: 20110601
  3. AVONEX [Suspect]
     Indication: MULTIPLE SCLEROSIS
     Route: 030
     Dates: start: 20020214, end: 20030101
  4. AVONEX [Suspect]
     Route: 030
     Dates: start: 20030101

REACTIONS (10)
  - FALL [None]
  - TOOTH DISORDER [None]
  - INFLUENZA LIKE ILLNESS [None]
  - PULMONARY OEDEMA [None]
  - CATARACT [None]
  - CORONARY ARTERY OCCLUSION [None]
  - MUSCLE SPASMS [None]
  - MULTIPLE SCLEROSIS RELAPSE [None]
  - DYSPNOEA [None]
  - RIB FRACTURE [None]
